FAERS Safety Report 21870075 (Version 1)
Quarter: 2023Q1

REPORT INFORMATION
  Report Type: Report from Study
  Country: US (occurrence: US)
  Receive Date: 20230117
  Receipt Date: 20230117
  Transmission Date: 20230418
  Serious: Yes (Hospitalization, Other)
  Sender: FDA-Public Use
  Company Number: US-ABBVIE-4271837

PATIENT
  Sex: Female

DRUGS (1)
  1. SYNTHROID [Suspect]
     Active Substance: LEVOTHYROXINE SODIUM
     Indication: Hypothyroidism
     Route: 048

REACTIONS (7)
  - Cerebrovascular accident [Recovering/Resolving]
  - Malaise [Unknown]
  - Influenza [Recovered/Resolved]
  - Vertigo [Recovering/Resolving]
  - Transient ischaemic attack [Recovering/Resolving]
  - Nephrolithiasis [Recovering/Resolving]
  - Blood potassium decreased [Recovering/Resolving]

NARRATIVE: CASE EVENT DATE: 20200101
